FAERS Safety Report 10380834 (Version 1)
Quarter: 2014Q1

REPORT INFORMATION
  Report Type: Spontaneous
  Country: US (occurrence: None)
  Receive Date: 20140306
  Receipt Date: 20140306
  Transmission Date: 20141002
  Serious: Yes (Hospitalization, Other)
  Sender: FDA-Public Use
  Company Number: 163-21880-13034554

PATIENT
  Age: 71 Year
  Sex: Female

DRUGS (20)
  1. REVLIMID (LENALIDOMIDE) (25 MILLIGRAM, CAPSULES) [Suspect]
     Indication: PLASMA CELL MYELOMA
     Route: 048
     Dates: start: 20130222
  2. FERROUS SULFATE (FERROUS SULFATE) [Concomitant]
  3. VITAMIN B12 (CYANOCOBALAMIN) [Concomitant]
  4. VELCADE (BORTEZOMIB) [Concomitant]
  5. FOSAMAX (ALENDRONATE SODIUM) [Concomitant]
  6. JANUMET (JANUMET) [Concomitant]
  7. IPRATROPIIUM (IPRATROPIUM) [Concomitant]
  8. LOSARTAN -HCTZ (HYZAAR) [Concomitant]
  9. GLIMEPIRIDE (GLIMEPIRIDE) [Concomitant]
  10. PRIMIDONE (PRIMIDONE) [Concomitant]
  11. PILOCARPINE (PILOCARPINE) [Concomitant]
  12. ADVAIR DISKUS [Concomitant]
  13. NEXIUM (ESOMEPRAZOLE) [Concomitant]
  14. ALBUTEROL (SALBUTAMOL) [Concomitant]
  15. ZYRTEC (CETIRIZINE HYDROCHLORIDE) [Concomitant]
  16. CALCIUM (CALCIUM) [Concomitant]
  17. COD LIVER OIL (COD-LIVER OIL) [Concomitant]
  18. ASPIRIN (ACETYLSALICYLIC ACID) [Concomitant]
  19. IBUPROFEN (IBUPROFEN) [Concomitant]
  20. MVI (MVI) [Concomitant]

REACTIONS (2)
  - Chest pain [None]
  - Plasma cell myeloma [None]
